FAERS Safety Report 25548629 (Version 1)
Quarter: 2025Q3

REPORT INFORMATION
  Report Type: Spontaneous
  Country: EU (occurrence: EU)
  Receive Date: 20250714
  Receipt Date: 20250714
  Transmission Date: 20251021
  Serious: Yes (Hospitalization, Other)
  Sender: NOVARTIS
  Company Number: EU-002147023-NVSC2025ES109871

PATIENT
  Age: 21 Year
  Sex: Male

DRUGS (5)
  1. OCTREOTIDE [Suspect]
     Active Substance: OCTREOTIDE
     Indication: Gastrointestinal haemorrhage
     Dosage: 200 UG, QW
     Route: 058
     Dates: start: 201201
  2. OCTREOTIDE [Suspect]
     Active Substance: OCTREOTIDE
     Dosage: 20 MG, QMO
     Route: 058
     Dates: start: 201203
  3. OCTREOTIDE [Suspect]
     Active Substance: OCTREOTIDE
  4. IRON [Concomitant]
     Active Substance: IRON
     Indication: Anaemia
     Route: 042
  5. PHYTONADIONE [Concomitant]
     Active Substance: PHYTONADIONE
     Indication: Anaemia
     Route: 065

REACTIONS (4)
  - Off label use [Unknown]
  - Osteonecrosis [Recovering/Resolving]
  - Diarrhoea [Unknown]
  - Injection site discomfort [Unknown]
